FAERS Safety Report 9752514 (Version 2)
Quarter: 2013Q4

REPORT INFORMATION
  Report Type: Report from Study
  Country: NL (occurrence: NL)
  Receive Date: 20131213
  Receipt Date: 20131224
  Transmission Date: 20140711
  Serious: Yes (Hospitalization)
  Sender: FDA-Public Use
  Company Number: NL-JNJFOC-20131201000

PATIENT
  Age: 8 Decade
  Sex: Male

DRUGS (11)
  1. ABIRATERONE ACETATE [Suspect]
     Indication: PROSTATE CANCER
     Route: 048
     Dates: start: 20130130
  2. OXYCODON [Concomitant]
     Route: 065
  3. OXYNORM [Concomitant]
     Route: 065
  4. OXYNORM [Concomitant]
     Route: 065
  5. MALOXOLE [Concomitant]
     Route: 065
  6. ATORVASTATIN [Concomitant]
     Route: 065
  7. ZOLADEX [Concomitant]
     Indication: PROSTATE CANCER METASTATIC
     Route: 065
  8. OMEPRAZOLE [Concomitant]
     Route: 065
  9. PREDNISON [Concomitant]
     Route: 065
  10. CYPROTERONE ACETATE [Concomitant]
     Route: 065
  11. DOCETAXEL [Concomitant]
     Indication: METASTASIS
     Route: 065
     Dates: start: 20120813, end: 20130123

REACTIONS (2)
  - Malaise [Unknown]
  - Pain [Unknown]
